FAERS Safety Report 8293165-5 (Version None)
Quarter: 2012Q2

REPORT INFORMATION
  Report Type: 
  Country: None (occurrence: None)
  Receive Date: 20120417
  Receipt Date: 20110801
  Transmission Date: 20120825
  Serious: No
  Sender: FDA-Public Use
  Company Number: US-ASTRAZENECA-2011SE46135

PATIENT
  Age: 19038 Day
  Sex: Female

DRUGS (28)
  1. HYDROCHLOROTHIAZIDE [Concomitant]
  2. PROTONIX [Concomitant]
  3. NORVASC [Concomitant]
  4. ANAPROX DS [Concomitant]
  5. FLEXERIL [Concomitant]
  6. NEXIUM [Suspect]
     Route: 048
     Dates: start: 20091201, end: 20091201
  7. NEXIUM [Suspect]
     Route: 048
     Dates: start: 20091201
  8. BROMFED SR [Concomitant]
  9. CARAFATE [Concomitant]
  10. NIZORAL TOPICAL [Concomitant]
  11. ACIPHEX [Concomitant]
  12. SINGULAIR [Concomitant]
  13. EZOL [Concomitant]
  14. PREDNISONE [Concomitant]
  15. ALBUTEROL SULFATE [Concomitant]
  16. METOCLOPRAMIDE HCL [Concomitant]
  17. SURFAK STOOL SOFTENER [Concomitant]
  18. ZITHROMAX [Concomitant]
  19. ADVAIR DISKUS 100/50 [Concomitant]
  20. PEPCID [Concomitant]
  21. PREVACID [Concomitant]
  22. MEDROL [Concomitant]
  23. CLARINEX [Concomitant]
  24. AMBIEN [Concomitant]
  25. PRILOSEC [Suspect]
     Indication: GASTROOESOPHAGEAL REFLUX DISEASE
     Route: 048
  26. PHENERGAN EXPECTORANT W/ CODEINE [Concomitant]
  27. ELOCON [Concomitant]
  28. ZYRTEC [Concomitant]

REACTIONS (20)
  - NECK PAIN [None]
  - BACK PAIN [None]
  - PAIN [None]
  - TENSION HEADACHE [None]
  - VAGINAL INFECTION [None]
  - ESSENTIAL HYPERTENSION [None]
  - ENTHESOPATHY [None]
  - GASTROOESOPHAGEAL REFLUX DISEASE [None]
  - HEADACHE [None]
  - INSOMNIA [None]
  - MALAISE [None]
  - ASTHMA [None]
  - ORAL DISORDER [None]
  - FATIGUE [None]
  - LIGAMENT SPRAIN [None]
  - UPPER RESPIRATORY TRACT INFECTION [None]
  - RHINITIS SEASONAL [None]
  - OEDEMA [None]
  - OSTEOARTHRITIS [None]
  - ALOPECIA [None]
